FAERS Safety Report 14616360 (Version 2)
Quarter: 2018Q1

REPORT INFORMATION
  Report Type: Spontaneous
  Country: US (occurrence: US)
  Receive Date: 20180309
  Receipt Date: 20180329
  Transmission Date: 20180509
  Serious: No
  Sender: FDA-Public Use
  Company Number: US-PFIZER INC-2018096050

PATIENT
  Age: 65 Year
  Sex: Female

DRUGS (1)
  1. EUCRISA [Suspect]
     Active Substance: CRISABOROLE
     Dosage: UNK, 2X/DAY
     Route: 061

REACTIONS (3)
  - Onychoclasis [Unknown]
  - Nail disorder [Unknown]
  - Drug effect incomplete [Unknown]
